FAERS Safety Report 9865478 (Version 2)
Quarter: 2014Q1

REPORT INFORMATION
  Report Type: Spontaneous
  Country: US (occurrence: US)
  Receive Date: 20140203
  Receipt Date: 20140203
  Transmission Date: 20141002
  Serious: No
  Sender: FDA-Public Use
  Company Number: US-ALLERGAN-1308117US

PATIENT
  Age: 45 Year
  Sex: Female

DRUGS (4)
  1. RESTASIS [Suspect]
     Indication: DRY EYE
     Dosage: 2 GTT, BID
  2. RESTASIS [Suspect]
     Dosage: UNK
  3. FISH OIL [Concomitant]
     Indication: PRODUCT USED FOR UNKNOWN INDICATION
  4. BIRTH CONTROL MEDICATION NOS [Concomitant]
     Indication: CONTRACEPTION

REACTIONS (4)
  - Asthenopia [Unknown]
  - Eyelid ptosis [Unknown]
  - Dry eye [Unknown]
  - Drug ineffective [Unknown]
